FAERS Safety Report 5411842-8 (Version None)
Quarter: 2007Q3

REPORT INFORMATION
  Report Type: 
  Country: None (occurrence: None)
  Receive Date: 20070713
  Receipt Date: 20070321
  Transmission Date: 20080115
  Serious: No
  Sender: FDA-Public Use
  Company Number: 2007SP001023

PATIENT
  Age: 81 Year
  Sex: Male
  Weight: 83.9154 kg

DRUGS (5)
  1. LUNESTA [Suspect]
     Indication: INSOMNIA
     Dosage: 2 MG;ORAL
     Route: 048
     Dates: start: 20070301
  2. FELODIPINE [Concomitant]
  3. GLYBURIDE [Concomitant]
  4. NEXIUM [Concomitant]
  5. ZETIA [Concomitant]

REACTIONS (1)
  - SOMNOLENCE [None]
